FAERS Safety Report 9505472 (Version 1)
Quarter: 2013Q1

REPORT INFORMATION
  Report Type: Spontaneous
  Country: US (occurrence: None)
  Receive Date: 20130220
  Receipt Date: 20130220
  Transmission Date: 20140127
  Serious: No
  Sender: FDA-Public Use
  Company Number: 1000040897

PATIENT
  Age: 69 Year
  Sex: Male

DRUGS (7)
  1. VIIBRYD (VILAZODONE HYDROCHLORIDE) 20 MILLIGRAM, TABLETS [Suspect]
     Indication: DEPRESSION
     Route: 048
     Dates: start: 201211, end: 201211
  2. VIIBRYD (VILAZODONE HYDROCHLORIDE) (40 MILLIGRAM, TABLETS) [Suspect]
     Indication: DEPRESSION
     Route: 048
     Dates: start: 201211, end: 20121205
  3. NORCO (ACETAMINOPHEN, HYDROCODONE) [Suspect]
  4. BYSTOLIC NEBIVOLOL HYDROCHLORIDE) (TABLETS) [Concomitant]
  5. COUMADIN (WARFARIN SODIUM) [Concomitant]
  6. BACLOFEN (BACLOFEN) [Concomitant]
  7. DURAGESIC (FENTANYL) [Concomitant]

REACTIONS (9)
  - Blood pressure increased [None]
  - Pharyngeal oedema [None]
  - Depression [None]
  - Diarrhoea [None]
  - Nausea [None]
  - Anxiety [None]
  - Vomiting [None]
  - Insomnia [None]
  - Panic attack [None]
